FAERS Safety Report 23128440 (Version 1)
Quarter: 2023Q4

REPORT INFORMATION
  Report Type: Spontaneous
  Country: US (occurrence: US)
  Receive Date: 20231031
  Receipt Date: 20231031
  Transmission Date: 20240110
  Serious: Yes (Other)
  Sender: FDA-Public Use
  Company Number: US-HORIZON THERAPEUTICS-HZN-2023-008278

PATIENT

DRUGS (1)
  1. TEPEZZA [Suspect]
     Active Substance: TEPROTUMUMAB-TRBW
     Indication: Endocrine ophthalmopathy
     Dosage: UNK
     Route: 042
     Dates: start: 202010, end: 202109

REACTIONS (7)
  - Disability [Unknown]
  - Deafness [Unknown]
  - Mental disorder [Unknown]
  - Injury [Unknown]
  - Pain [Unknown]
  - Condition aggravated [Unknown]
  - Tinnitus [Unknown]
